FAERS Safety Report 10037766 (Version 1)
Quarter: 2014Q1

REPORT INFORMATION
  Report Type: Spontaneous
  Country: US (occurrence: US)
  Receive Date: 20140326
  Receipt Date: 20140326
  Transmission Date: 20141002
  Serious: No
  Sender: FDA-Public Use
  Company Number: US-PFIZER INC-2014083727

PATIENT
  Age: 55 Year
  Sex: Female
  Weight: 55.3 kg

DRUGS (2)
  1. LEVOXYL [Suspect]
     Indication: HYPOTHYROIDISM
     Dosage: 112 UG, 1X/DAY
     Dates: start: 2006
  2. ZANAFLEX [Concomitant]
     Indication: MUSCLE RELAXANT THERAPY
     Dosage: UNK

REACTIONS (6)
  - Constipation [Unknown]
  - Dizziness [Unknown]
  - Back pain [Unknown]
  - Malaise [Unknown]
  - Fatigue [Unknown]
  - Dysstasia [Unknown]
